FAERS Safety Report 5654280-5 (Version None)
Quarter: 2008Q1

REPORT INFORMATION
  Report Type: 
  Country: None (occurrence: None)
  Receive Date: 20080306
  Receipt Date: 20080221
  Transmission Date: 20080703
  Serious: No
  Sender: FDA-Public Use
  Company Number: US-ABBOTT-08P-163-0439373-00

PATIENT
  Age: 62 Year
  Sex: Female
  Weight: 54.48 kg

DRUGS (1)
  1. ZEMPLAR [Suspect]
     Indication: DIALYSIS
     Route: 048
     Dates: start: 20080213, end: 20080221

REACTIONS (2)
  - RASH ERYTHEMATOUS [None]
  - RASH PRURITIC [None]
